FAERS Safety Report 13051790 (Version 2)
Quarter: 2017Q1

REPORT INFORMATION
  Report Type: Spontaneous
  Country: US (occurrence: US)
  Receive Date: 20161221
  Receipt Date: 20170315
  Transmission Date: 20170428
  Serious: Yes (Other)
  Sender: FDA-Public Use
  Company Number: US-SA-2016SA229986

PATIENT
  Age: 83 Year
  Sex: Female
  Weight: 66.6 kg

DRUGS (9)
  1. LISINOPRIL. [Concomitant]
     Active Substance: LISINOPRIL
     Indication: BLOOD PRESSURE ABNORMAL
  2. FLONASE [Concomitant]
     Active Substance: FLUTICASONE PROPIONATE
     Indication: BRONCHITIS
     Dosage: NASAL SPRAY
  3. ALIROCUMAB PREFILLED PEN [Concomitant]
     Active Substance: ALIROCUMAB
     Indication: TYPE V HYPERLIPIDAEMIA
     Dates: start: 2017
  4. PRALUENT [Suspect]
     Active Substance: ALIROCUMAB
     Indication: TYPE V HYPERLIPIDAEMIA
     Route: 058
     Dates: start: 2017
  5. PRALUENT [Suspect]
     Active Substance: ALIROCUMAB
     Indication: TYPE V HYPERLIPIDAEMIA
     Route: 058
     Dates: start: 20160705, end: 20170203
  6. LASIX [Concomitant]
     Active Substance: FUROSEMIDE
     Dosage: PRN
     Dates: start: 20170109
  7. POTASSIUM [Concomitant]
     Active Substance: POTASSIUM
     Indication: SUPPLEMENTATION THERAPY
     Dates: start: 201612, end: 201701
  8. FLONASE [Concomitant]
     Active Substance: FLUTICASONE PROPIONATE
     Indication: COUGH
     Dosage: NASAL SPRAY
  9. ALIROCUMAB PREFILLED PEN [Concomitant]
     Active Substance: ALIROCUMAB
     Indication: TYPE V HYPERLIPIDAEMIA
     Dates: start: 20160705, end: 20170203

REACTIONS (6)
  - Anxiety [Unknown]
  - Brain natriuretic peptide increased [Recovering/Resolving]
  - Cardiac failure congestive [Recovering/Resolving]
  - Dyspnoea [Recovering/Resolving]
  - Diastolic dysfunction [Recovering/Resolving]
  - Fluid retention [Unknown]

NARRATIVE: CASE EVENT DATE: 20161213
